FAERS Safety Report 6327251-3 (Version None)
Quarter: 2009Q3

REPORT INFORMATION
  Report Type: 
  Country: None (occurrence: None)
  Receive Date: 20090825
  Receipt Date: 20090820
  Transmission Date: 20100115
  Serious: Yes (Life-Threatening, Hospitalization)
  Sender: FDA-Public Use
  Company Number: US-GILEAD-2009-0023289

PATIENT
  Sex: Male
  Weight: 61.744 kg

DRUGS (6)
  1. ATRIPLA [Suspect]
     Indication: HIV INFECTION
     Route: 048
     Dates: start: 20080603, end: 20090102
  2. KALETRA [Concomitant]
     Indication: HIV INFECTION
  3. NORVASC [Concomitant]
     Indication: HYPERTENSION
  4. LYRICA [Concomitant]
  5. ZOCOR [Concomitant]
     Indication: BLOOD CHOLESTEROL INCREASED
  6. METOPROLOL [Concomitant]
     Indication: BLOOD CHOLESTEROL INCREASED

REACTIONS (2)
  - DYSPHAGIA [None]
  - OESOPHAGEAL RUPTURE [None]
